FAERS Safety Report 24366231 (Version 1)
Quarter: 2024Q3

REPORT INFORMATION
  Report Type: Spontaneous
  Country: US (occurrence: None)
  Receive Date: 20240925
  Receipt Date: 20240925
  Transmission Date: 20241017
  Serious: Yes (Hospitalization)
  Sender: Public
  Company Number: None

PATIENT
  Age: 52 Year
  Sex: Female
  Weight: 94.5 kg

DRUGS (12)
  1. CEFADROXIL [Suspect]
     Active Substance: CEFADROXIL
     Indication: Infection prophylaxis
     Dosage: OTHER QUANTITY : 1 CAPSULE(S);?FREQUENCY : EVERY 12 HOURS;?
     Route: 048
     Dates: start: 20240921, end: 20240921
  2. CEFADROXIL [Suspect]
     Active Substance: CEFADROXIL
     Indication: Post procedural infection
  3. Losaartan [Concomitant]
  4. ATORVASTATIN [Concomitant]
     Active Substance: ATORVASTATIN
  5. Tyadilt [Concomitant]
  6. HYDROCHLOROTHIAZIDE [Concomitant]
     Active Substance: HYDROCHLOROTHIAZIDE
  7. WELLBUTRIN [Concomitant]
     Active Substance: BUPROPION HYDROCHLORIDE
  8. OXYCODONE [Concomitant]
     Active Substance: OXYCODONE
  9. TOPAMAX [Concomitant]
     Active Substance: TOPIRAMATE
  10. TYLENOL [Concomitant]
     Active Substance: ACETAMINOPHEN
  11. IBUPROFEN [Concomitant]
     Active Substance: IBUPROFEN
  12. Centrum 50+ for women [Concomitant]

REACTIONS (4)
  - Loss of consciousness [None]
  - Confusional state [None]
  - Asthenia [None]
  - Vomiting [None]

NARRATIVE: CASE EVENT DATE: 20240921
